FAERS Safety Report 21926520 (Version 1)
Quarter: 2023Q1

REPORT INFORMATION
  Report Type: Spontaneous
  Country: PT (occurrence: PT)
  Receive Date: 20230130
  Receipt Date: 20230130
  Transmission Date: 20230417
  Serious: Yes (Other)
  Sender: FDA-Public Use
  Company Number: PT-Accord-292683

PATIENT
  Age: 50 Year
  Sex: Male

DRUGS (2)
  1. ETOPOSIDE [Suspect]
     Active Substance: ETOPOSIDE
     Indication: Product used for unknown indication
     Dosage: 100 MILLIGRAM/SQ. METER, 6 CYCLICAL
     Route: 065
  2. CISPLATIN [Suspect]
     Active Substance: CISPLATIN
     Indication: Product used for unknown indication
     Dosage: 75 MILLIGRAM/SQ. METER, 6 CYCLICAL
     Route: 065

REACTIONS (2)
  - Nephropathy toxic [Recovered/Resolved]
  - Neutropenia [Unknown]
